FAERS Safety Report 5484469-X (Version None)
Quarter: 2007Q4

REPORT INFORMATION
  Report Type: 
  Country: None (occurrence: None)
  Receive Date: 20071009
  Receipt Date: 20071001
  Transmission Date: 20080405
  Serious: Yes (Other)
  Sender: FDA-Public Use
  Company Number: 2007323802

PATIENT
  Sex: Male
  Weight: 25.4 kg

DRUGS (4)
  1. BENADRYL [Suspect]
     Indication: HYPERSENSITIVITY
     Dosage: 1 PILL, 3 TO 4 TIMES DAILY, ORAL
     Route: 048
  2. CLARINEX [Concomitant]
  3. SINGULAIR [Concomitant]
  4. PULMICORT [Concomitant]

REACTIONS (6)
  - DROOLING [None]
  - GAIT DISTURBANCE [None]
  - HYPOTONIA [None]
  - LETHARGY [None]
  - MOVEMENT DISORDER [None]
  - NERVOUS SYSTEM DISORDER [None]
